FAERS Safety Report 5315622-3 (Version None)
Quarter: 2007Q2

REPORT INFORMATION
  Report Type: 
  Country: None (occurrence: None)
  Receive Date: 20070503
  Receipt Date: 20070427
  Transmission Date: 20071010
  Serious: Yes (Hospitalization)
  Sender: FDA-Public Use
  Company Number: 2007SE02416

PATIENT
  Age: 64 Year
  Sex: Male

DRUGS (5)
  1. ESOMEPRAZOLE MAGNESIUM [Suspect]
     Route: 048
     Dates: start: 20060901, end: 20070223
  2. DIKLOFENAK [Suspect]
     Route: 048
     Dates: end: 20070222
  3. SYMBICORT [Concomitant]
  4. BETAPRED [Concomitant]
  5. RINEXIN [Concomitant]

REACTIONS (4)
  - BRAIN OEDEMA [None]
  - HEADACHE [None]
  - NAUSEA [None]
  - TRANSAMINASES INCREASED [None]
